FAERS Safety Report 10718831 (Version 3)
Quarter: 2015Q3

REPORT INFORMATION
  Report Type: Spontaneous
  Country: US (occurrence: US)
  Receive Date: 20150119
  Receipt Date: 20150722
  Transmission Date: 20151125
  Serious: No
  Sender: FDA-Public Use
  Company Number: US-UNITED THERAPEUTICS-UNT-2014-005560

PATIENT
  Age: 76 Year
  Sex: Female
  Weight: 65.76 kg

DRUGS (4)
  1. REVATIO [Concomitant]
     Active Substance: SILDENAFIL CITRATE
     Indication: PRODUCT USED FOR UNKNOWN INDICATION
  2. REMODULIN [Suspect]
     Active Substance: TREPROSTINIL
     Indication: PULMONARY ARTERIAL HYPERTENSION
     Dosage: 0.060 ?G/KG/MIN, CONTINUING
     Route: 058
     Dates: start: 20130726
  3. LETAIRIS [Concomitant]
     Active Substance: AMBRISENTAN
     Indication: PRODUCT USED FOR UNKNOWN INDICATION
  4. ASPIRIN. [Concomitant]
     Active Substance: ASPIRIN
     Indication: PRODUCT USED FOR UNKNOWN INDICATION

REACTIONS (11)
  - Thrombosis in device [Unknown]
  - Pruritus [Unknown]
  - Malaise [Unknown]
  - Infusion site erythema [Recovered/Resolved]
  - Erythema [Unknown]
  - Infusion site rash [Unknown]
  - Infusion site nodule [Not Recovered/Not Resolved]
  - Infusion site pain [Unknown]
  - Infusion site pruritus [Recovered/Resolved]
  - Injection site discharge [Unknown]
  - Drug dose omission [Unknown]

NARRATIVE: CASE EVENT DATE: 201410
